FAERS Safety Report 4323549-9 (Version None)
Quarter: 2004Q1

REPORT INFORMATION
  Report Type: 
  Country: None (occurrence: None)
  Receive Date: 20040325
  Receipt Date: 20030620
  Transmission Date: 20041129
  Serious: Yes (Congenital Anomaly)
  Sender: FDA-Public Use
  Company Number: WAES 0306FRA00084

PATIENT
  Age: 0 Day
  Sex: Female
  Weight: 4 kg

DRUGS (8)
  1. ALBUTEROL SULFATE [Concomitant]
     Indication: ASTHMA
  2. AMBROXOL HYDROCHLORIDE [Concomitant]
  3. BAMBUTEROL [Concomitant]
     Indication: ASTHMA
  4. BUDESONIDE [Concomitant]
  5. LORATADINE [Concomitant]
     Indication: RHINITIS ALLERGIC
  6. SINGULAIR [Suspect]
     Indication: ASTHMA
     Dates: start: 20020501, end: 20030602
  7. NITROFURANTOIN [Concomitant]
     Indication: URINARY TRACT INFECTION
     Dates: start: 20030707, end: 20030718
  8. PHLOROGLUCINOL AND TRIMETHYLPHLOROGLUCINOL [Concomitant]

REACTIONS (4)
  - DERMOID CYST [None]
  - MATERNAL DRUGS AFFECTING FOETUS [None]
  - STRABISMUS [None]
  - STRABISMUS CONGENITAL [None]
